FAERS Safety Report 5203469-8 (Version None)
Quarter: 2007Q1

REPORT INFORMATION
  Report Type: 
  Country: None (occurrence: None)
  Receive Date: 20070110
  Receipt Date: 20061228
  Transmission Date: 20070707
  Serious: Yes (Hospitalization, Other)
  Sender: FDA-Public Use
  Company Number: PHBS2006JP17465

PATIENT
  Sex: Male

DRUGS (5)
  1. NEORAL [Suspect]
     Indication: RENAL TRANSPLANT
     Dosage: 120 MG/D
     Route: 048
     Dates: end: 20061205
  2. NEORAL [Suspect]
     Dosage: 200 MG/DAY
     Route: 048
  3. NEORAL [Suspect]
     Dosage: 150 MG/DAY
     Route: 048
  4. PROGRAF [Concomitant]
     Indication: RENAL TRANSPLANT
     Dosage: 2 MG/D
     Route: 048
     Dates: start: 20061206
  5. PROGRAF [Concomitant]
     Dosage: 1 MG/D
     Route: 048

REACTIONS (7)
  - ASTHENIA [None]
  - BLOOD MAGNESIUM DECREASED [None]
  - CEREBRAL INFARCTION [None]
  - DRUG LEVEL INCREASED [None]
  - ENCEPHALOPATHY [None]
  - FEELING ABNORMAL [None]
  - IMMUNOSUPPRESSANT DRUG LEVEL INCREASED [None]
